FAERS Safety Report 7987377-5 (Version None)
Quarter: 2011Q4

REPORT INFORMATION
  Report Type: 
  Country: None (occurrence: None)
  Receive Date: 20111216
  Receipt Date: 20111025
  Transmission Date: 20120403
  Serious: No
  Sender: FDA-Public Use
  Company Number: US-BRISTOL-MYERS SQUIBB COMPANY-16194243

PATIENT
  Sex: Female

DRUGS (3)
  1. LITHIUM CARBONATE [Suspect]
  2. ABILIFY [Suspect]
     Indication: BIPOLAR DISORDER
  3. ABILIFY [Suspect]
     Indication: MAJOR DEPRESSION

REACTIONS (2)
  - ENDOCRINE TEST ABNORMAL [None]
  - SERUM SEROTONIN DECREASED [None]
